FAERS Safety Report 4386841-8 (Version None)
Quarter: 2004Q2

REPORT INFORMATION
  Report Type: 
  Country: None (occurrence: None)
  Receive Date: 20040625
  Receipt Date: 20040622
  Transmission Date: 20050107
  Serious: Yes (Other)
  Sender: FDA-Public Use
  Company Number: HYDM20040006

PATIENT
  Age: 81 Year
  Sex: Female

DRUGS (5)
  1. HYDROMORPHONE HCL [Suspect]
     Indication: SPINAL FRACTURE
     Dosage: 12 MG DAILY PO
     Route: 048
     Dates: start: 20020401
  2. FLUOXETINE [Suspect]
     Indication: DEPRESSION
     Dosage: 20 MG DAILY PO
     Route: 048
  3. LISINOPRIL [Concomitant]
  4. PENTOXIFYLLINE [Concomitant]
  5. HYDROXYZINE [Concomitant]

REACTIONS (6)
  - DRUG INEFFECTIVE [None]
  - DRUG INTERACTION [None]
  - INTERVERTEBRAL DISC DISORDER [None]
  - PAIN [None]
  - SEROTONIN SYNDROME [None]
  - SPINAL FRACTURE [None]
